FAERS Safety Report 10067994 (Version 2)
Quarter: 2014Q2

REPORT INFORMATION
  Report Type: Spontaneous
  Country: JP (occurrence: JP)
  Receive Date: 20140409
  Receipt Date: 20140409
  Transmission Date: 20141212
  Serious: Yes (Hospitalization)
  Sender: FDA-Public Use
  Company Number: JP-PFIZER INC-2014086180

PATIENT
  Age: 82 Year
  Sex: Female

DRUGS (2)
  1. NORVASC [Suspect]
     Dosage: 5 MG, 1X/DAY
     Route: 048
  2. HALCION [Suspect]
     Dosage: 0.25 MG, 1X/DAY
     Route: 048

REACTIONS (2)
  - Pneumonia [Unknown]
  - Dysgeusia [Not Recovered/Not Resolved]
